FAERS Safety Report 4718211-4 (Version None)
Quarter: 2005Q3

REPORT INFORMATION
  Report Type: 
  Country: None (occurrence: None)
  Receive Date: 20050720
  Receipt Date: 20050602
  Transmission Date: 20060218
  Serious: Yes (Other)
  Sender: FDA-Public Use
  Company Number: PHHO2005CA08930

PATIENT
  Sex: Female

DRUGS (5)
  1. CLOZARIL [Suspect]
     Indication: SCHIZOPHRENIA, PARANOID TYPE
     Dosage: 300 MG, QD
     Route: 048
     Dates: start: 20050125, end: 20050515
  2. CLOZARIL [Suspect]
     Route: 048
     Dates: start: 20050527
  3. RISPERDAL [Concomitant]
  4. ARTANE [Concomitant]
  5. DEPO-PROVERA [Concomitant]

REACTIONS (1)
  - OBESITY [None]
